FAERS Safety Report 4808225-8 (Version None)
Quarter: 2005Q4

REPORT INFORMATION
  Report Type: 
  Country: None (occurrence: None)
  Receive Date: 20051025
  Receipt Date: 20050513
  Transmission Date: 20060501
  Serious: Yes (Hospitalization)
  Sender: FDA-Public Use
  Company Number: US-BOEHRINGER INGELHEIM PHARMACEUTICALS, INC.-2005-BP-07950BP

PATIENT
  Sex: Female

DRUGS (8)
  1. SPIRIVA [Suspect]
     Indication: CHRONIC OBSTRUCTIVE PULMONARY DISEASE
     Route: 055
     Dates: start: 20041213
  2. TRAZODONE HCL [Concomitant]
     Indication: INSOMNIA
  3. FUROSEMIDE [Concomitant]
     Indication: DIURETIC THERAPY
  4. LEVOTHROID [Concomitant]
     Indication: HYPOTHYROIDISM
  5. ATENOLOL [Concomitant]
     Indication: HYPERTENSION
  6. ACTONEL [Concomitant]
  7. ASPIRIN [Concomitant]
  8. GLOBITOSOL PROPIONATE [Concomitant]

REACTIONS (1)
  - PNEUMONIA PNEUMOCOCCAL [None]
